FAERS Safety Report 8900659 (Version 1)
Quarter: 2012Q4

REPORT INFORMATION
  Report Type: 
  Country: US (occurrence: US)
  Receive Date: 20121109
  Receipt Date: 20121109
  Transmission Date: 20130627
  Serious: Yes (Hospitalization)
  Sender: FDA-Public Use
  Company Number: US-B.I. PHARMACEUTICALS,INC./RIDGEFIELD-2012-BP-27229BP

PATIENT
  Age: 70 Year
  Sex: Female

DRUGS (7)
  1. TRADJENTA [Suspect]
     Indication: DIABETES MELLITUS
     Dosage: 5 mg
     Route: 048
     Dates: start: 20121030, end: 201211
  2. XANAX [Concomitant]
     Route: 048
  3. LOTREL [Concomitant]
     Route: 048
  4. LASIX [Concomitant]
     Dosage: 20 mg
     Route: 048
  5. CRESTOR [Concomitant]
     Dosage: 20 mg
     Route: 048
  6. GLYBURIDE [Concomitant]
     Dosage: 5 mg
     Route: 048
  7. METFORMIN [Concomitant]
     Dosage: 1000 mg
     Route: 048

REACTIONS (1)
  - Palpitations [Recovered/Resolved]
